FAERS Safety Report 6000269-6 (Version None)
Quarter: 2008Q4

REPORT INFORMATION
  Report Type: 
  Country: None (occurrence: None)
  Receive Date: 20081215
  Receipt Date: 20081209
  Transmission Date: 20090506
  Serious: Yes (Disabling)
  Sender: FDA-Public Use
  Company Number: PHHO2008MX14632

PATIENT
  Sex: Female
  Weight: 60 kg

DRUGS (3)
  1. CGS 20267 T30748+ [Suspect]
     Indication: BREAST CANCER
     Dosage: UNK
     Route: 048
     Dates: start: 20040513
  2. VITAMIN D [Concomitant]
  3. CALCIUM [Concomitant]

REACTIONS (5)
  - DISEASE PROGRESSION [None]
  - DRUG INEFFECTIVE [None]
  - EXTERNAL FIXATION OF FRACTURE [None]
  - FALL [None]
  - RADIUS FRACTURE [None]
